FAERS Safety Report 19689635 (Version 3)
Quarter: 2021Q4

REPORT INFORMATION
  Report Type: Spontaneous
  Country: US (occurrence: US)
  Receive Date: 20210812
  Receipt Date: 20211001
  Transmission Date: 20220303
  Serious: No
  Sender: FDA-Public Use
  Company Number: US-PFIZER INC-2021903647

PATIENT
  Age: 13 Year
  Sex: Male
  Weight: 78.47 kg

DRUGS (1)
  1. GENOTROPIN [Suspect]
     Active Substance: SOMATROPIN
     Dosage: 1.8 MG, DAILY
     Dates: start: 20200125

REACTIONS (2)
  - Drug dose omission by device [Unknown]
  - Device issue [Unknown]
